FAERS Safety Report 9788601 (Version 1)
Quarter: 2013Q4

REPORT INFORMATION
  Report Type: Spontaneous
  Country: IT (occurrence: IT)
  Receive Date: 20131230
  Receipt Date: 20131230
  Transmission Date: 20140711
  Serious: Yes (Hospitalization)
  Sender: FDA-Public Use
  Company Number: IT-BAYER-2013-156889

PATIENT
  Age: 91 Year
  Sex: Male
  Weight: 89.8 kg

DRUGS (6)
  1. CARDIOASPIRIN [Suspect]
     Indication: PROPHYLAXIS
     Dosage: DAILY DOSE 100 MG
     Route: 048
     Dates: start: 20100101, end: 20131123
  2. NORMIX [Concomitant]
     Dosage: DAILY DOSE 6 DF
     Route: 048
     Dates: start: 20131118, end: 20131210
  3. CONGESCOR [Concomitant]
     Dosage: DAILY DOSE 1 DF
     Route: 048
  4. ALDACTONE [SPIRONOLACTONE] [Concomitant]
     Dosage: DAILY DOSE 1 DF
     Route: 048
  5. SUGUAN M [Concomitant]
     Dosage: DAILY DOSE 3 DF
     Route: 048
  6. LEXOTAN [Concomitant]
     Dosage: DAILY DOSE 15 GTT
     Route: 048

REACTIONS (3)
  - Presyncope [Recovering/Resolving]
  - Intestinal haemorrhage [Recovering/Resolving]
  - Anaemia [Recovering/Resolving]
